FAERS Safety Report 26162905 (Version 1)
Quarter: 2025Q4

REPORT INFORMATION
  Report Type: Spontaneous
  Country: US (occurrence: US)
  Receive Date: 20251216
  Receipt Date: 20251216
  Transmission Date: 20260117
  Serious: No
  Sender: CELLTRION
  Company Number: US-CELLTRION INC.-2025US009820

PATIENT

DRUGS (6)
  1. TRUXIMA [Suspect]
     Active Substance: RITUXIMAB-ABBS
     Indication: Rheumatoid arthritis
     Dosage: UNK
     Dates: start: 202104
  2. TRAMADOL [Concomitant]
     Active Substance: TRAMADOL
  3. RECLAST [Concomitant]
     Active Substance: ZOLEDRONIC ACID
  4. MELOXICAM [Concomitant]
     Active Substance: MELOXICAM
  5. BACLOFEN [Concomitant]
     Active Substance: BACLOFEN
  6. VITAMIN D3 [Concomitant]
     Active Substance: CHOLECALCIFEROL

REACTIONS (3)
  - Joint range of motion decreased [Unknown]
  - Blood chloride increased [Unknown]
  - Treatment delayed [Unknown]
